FAERS Safety Report 7433641-8 (Version None)
Quarter: 2011Q2

REPORT INFORMATION
  Report Type: 
  Country: None (occurrence: None)
  Receive Date: 20110422
  Receipt Date: 20110420
  Transmission Date: 20111010
  Serious: Yes (Hospitalization)
  Sender: FDA-Public Use
  Company Number: US-MERCK-1010USA01164

PATIENT
  Age: 92 Year
  Sex: Female

DRUGS (1)
  1. FOSAMAX [Suspect]
     Indication: OSTEOPOROSIS
     Route: 048
     Dates: start: 20010101, end: 20081231

REACTIONS (7)
  - TOOTH FRACTURE [None]
  - GLAUCOMA [None]
  - FEMUR FRACTURE [None]
  - ADVERSE EVENT [None]
  - BLOOD PRESSURE [None]
  - LOW TURNOVER OSTEOPATHY [None]
  - PAIN [None]
